FAERS Safety Report 9454187 (Version 1)
Quarter: 2013Q3

REPORT INFORMATION
  Report Type: Spontaneous
  Country: BE (occurrence: BE)
  Receive Date: 20130812
  Receipt Date: 20130812
  Transmission Date: 20140515
  Serious: Yes (Death, Other)
  Sender: FDA-Public Use
  Company Number: BE-ASTRAZENECA-2013SE62522

PATIENT
  Age: 53 Year
  Sex: Male
  Weight: 75 kg

DRUGS (5)
  1. BRILIQUE [Suspect]
     Indication: MYOCARDIAL INFARCTION
     Route: 048
     Dates: start: 201211
  2. ZESTRIL [Concomitant]
     Route: 048
     Dates: start: 201211
  3. BISOPROLOL [Concomitant]
     Dates: start: 201211
  4. LIPITOR [Concomitant]
     Dates: start: 201211
  5. ASAFLOW [Concomitant]
     Dates: start: 201211

REACTIONS (1)
  - Myocardial infarction [Fatal]
